FAERS Safety Report 14019226 (Version 1)
Quarter: 2017Q3

REPORT INFORMATION
  Report Type: Spontaneous
  Country: US (occurrence: US)
  Receive Date: 20170928
  Receipt Date: 20170928
  Transmission Date: 20171128
  Serious: No
  Sender: FDA-Public Use
  Company Number: US-BION-004996

PATIENT
  Age: 49 Year
  Sex: Female
  Weight: 107.95 kg

DRUGS (1)
  1. LOPERAMIDE HYDROCHLORIDE. [Suspect]
     Active Substance: LOPERAMIDE HYDROCHLORIDE
     Indication: ANTIDIARRHOEAL SUPPORTIVE CARE
     Dosage: 4 DF DAILY
     Route: 048

REACTIONS (3)
  - Throat irritation [Recovering/Resolving]
  - Ear discomfort [Recovering/Resolving]
  - Product physical issue [Unknown]

NARRATIVE: CASE EVENT DATE: 20161011
